FAERS Safety Report 6003557-2 (Version None)
Quarter: 2008Q4

REPORT INFORMATION
  Report Type: 
  Country: None (occurrence: None)
  Receive Date: 20081216
  Receipt Date: 20081205
  Transmission Date: 20090506
  Serious: Yes (Hospitalization)
  Sender: FDA-Public Use
  Company Number: GB-TEVA-182151ISR

PATIENT
  Age: 31 Year
  Sex: Female

DRUGS (8)
  1. PROPRANOLOL [Suspect]
  2. METRONIDAZOLE [Suspect]
     Indication: PROPHYLAXIS
  3. PREDNISOLONE [Suspect]
  4. CARBIMAZOLE [Suspect]
  5. CEFADROXIL [Suspect]
     Indication: PROPHYLAXIS
     Route: 048
  6. ENOXAPARIN SODIUM [Suspect]
     Indication: THROMBOSIS PROPHYLAXIS
     Route: 048
  7. DIGOXIN [Suspect]
     Indication: ATRIAL FIBRILLATION
     Route: 048
  8. PROPYL-THIOURACIL [Suspect]
     Indication: BASEDOW'S DISEASE

REACTIONS (6)
  - DRUG EXPOSURE DURING PREGNANCY [None]
  - HEPATIC ENZYME ABNORMAL [None]
  - LEUKOPENIA [None]
  - NEUTROPENIA [None]
  - RASH [None]
  - THROMBOCYTOPENIA [None]
